FAERS Safety Report 23520772 (Version 1)
Quarter: 2024Q1

REPORT INFORMATION
  Report Type: 
  Country: None (occurrence: None)
  Receive Date: 20240214
  Receipt Date: 20240214
  Transmission Date: 20240409
  Serious: No
  Sender: FDA-Public Use
  Company Number: JP-CHUGAI-2024003833AA

PATIENT

DRUGS (1)
  1. TECENTRIQ [Suspect]
     Active Substance: ATEZOLIZUMAB
     Dosage: 1200 MILLIGRAM, ONCE/3WEEKS
     Dates: start: 2023, end: 2024

REACTIONS (2)
  - Interstitial lung disease [None]
  - Disease progression [None]

NARRATIVE: CASE EVENT DATE: 20240101
